FAERS Safety Report 9123478 (Version 1)
Quarter: 2013Q1

REPORT INFORMATION
  Report Type: Spontaneous
  Country: US (occurrence: US)
  Receive Date: 20130115
  Receipt Date: 20130115
  Transmission Date: 20140127
  Serious: Yes (Hospitalization)
  Sender: FDA-Public Use
  Company Number: US-VIROPHARMA INCORPORATED-20130104CINRY3809

PATIENT
  Age: 62 None
  Sex: Female
  Weight: 142.56 kg

DRUGS (11)
  1. CINRYZE (C1 ESTERASE INHIBITOR (HUMAN)) [Suspect]
     Indication: ANGIOEDEMA
     Route: 058
     Dates: start: 20121214
  2. ADVAIR [Concomitant]
     Indication: ASTHMA
     Dosage: UNKNOWN
     Route: 065
  3. BYSTOLIC [Concomitant]
     Indication: HYPERTENSION
     Dosage: UNKNOWN
     Route: 065
  4. ZANTAC [Concomitant]
     Indication: ANGIOEDEMA
     Dosage: UNKNOWN
     Route: 065
  5. ZANTAC [Concomitant]
     Indication: GASTROOESOPHAGEAL REFLUX DISEASE
  6. ALLEGRA [Concomitant]
     Indication: PRODUCT USED FOR UNKNOWN INDICATION
     Dosage: UNKNOWN
     Route: 065
  7. CYMBALTA [Concomitant]
     Indication: DEPRESSION
     Dosage: UNKNOWN
     Route: 065
  8. CELEBREX [Concomitant]
     Indication: ARTHRITIS
     Dosage: UNKNOWN
     Route: 065
  9. PREDNISONE [Concomitant]
     Indication: PRODUCT USED FOR UNKNOWN INDICATION
     Dosage: UNKNOWN
     Route: 065
  10. FIRAZYR [Concomitant]
     Indication: ANGIOEDEMA
     Dosage: UNKNOWN
     Route: 065
  11. CLONAZEPAM [Concomitant]
     Indication: ANXIETY
     Route: 065

REACTIONS (6)
  - Asthma [Recovered/Resolved]
  - Angioedema [Recovered/Resolved]
  - Inappropriate schedule of drug administration [Not Recovered/Not Resolved]
  - Therapy change [Not Recovered/Not Resolved]
  - Incorrect route of drug administration [Not Recovered/Not Resolved]
  - Off label use [Not Recovered/Not Resolved]
